FAERS Safety Report 9743788 (Version 4)
Quarter: 2019Q1

REPORT INFORMATION
  Report Type: Spontaneous
  Country: US (occurrence: US)
  Receive Date: 20131210
  Receipt Date: 20190311
  Transmission Date: 20190418
  Serious: Yes (Death, Hospitalization, Other)
  Sender: FDA-Public Use
  Company Number: US-INCYTE CORPORATION-2013IN002916

PATIENT

DRUGS (29)
  1. JAKAFI [Suspect]
     Active Substance: RUXOLITINIB
     Dosage: OF 20 MG QAM AND 15 MG QPM
     Route: 065
     Dates: start: 20180417
  2. MINOCYCLINE [Concomitant]
     Active Substance: MINOCYCLINE\MINOCYCLINE HYDROCHLORIDE
     Indication: PRODUCT USED FOR UNKNOWN INDICATION
     Route: 065
  3. GABAPENTIN. [Concomitant]
     Active Substance: GABAPENTIN
     Indication: PRODUCT USED FOR UNKNOWN INDICATION
     Route: 065
  4. JAKAFI [Suspect]
     Active Substance: RUXOLITINIB
     Indication: MYELOFIBROSIS
     Dosage: 20 MG, QAM; 15 MG QPM
     Route: 048
     Dates: start: 20120824
  5. JAKAFI [Suspect]
     Active Substance: RUXOLITINIB
     Dosage: 20 MG, QAM; 15 MG QPM
     Route: 048
     Dates: start: 20120824
  6. JAKAFI [Suspect]
     Active Substance: RUXOLITINIB
     Dosage: 20 MG, QAM; 15 MG, QPM
     Route: 048
     Dates: start: 20150521
  7. JAKAFI [Suspect]
     Active Substance: RUXOLITINIB
     Dosage: 20 MG, QAM; 15 MG, QPM
     Route: 048
     Dates: start: 20150521
  8. FINASTERIDE. [Concomitant]
     Active Substance: FINASTERIDE
     Indication: PRODUCT USED FOR UNKNOWN INDICATION
     Route: 065
  9. JAKAFI [Suspect]
     Active Substance: RUXOLITINIB
     Dosage: 5 MG, BID
     Route: 065
     Dates: start: 201603
  10. ROSUVASTATIN. [Concomitant]
     Active Substance: ROSUVASTATIN
     Indication: PRODUCT USED FOR UNKNOWN INDICATION
     Route: 065
  11. TRAZODONE [Concomitant]
     Active Substance: TRAZODONE HYDROCHLORIDE
     Indication: PRODUCT USED FOR UNKNOWN INDICATION
     Dosage: 50 MG, QD
     Route: 048
     Dates: start: 20190129
  12. METOLAZONE. [Concomitant]
     Active Substance: METOLAZONE
     Indication: PRODUCT USED FOR UNKNOWN INDICATION
     Dosage: 2.5 MG, UNK
     Route: 048
  13. JAKAFI [Suspect]
     Active Substance: RUXOLITINIB
     Dosage: 5 MG, BID
     Route: 048
     Dates: start: 20120905
  14. JAKAFI [Suspect]
     Active Substance: RUXOLITINIB
     Dosage: 10 MG, BID
     Route: 065
  15. NITROGLYCERIN. [Concomitant]
     Active Substance: NITROGLYCERIN
     Indication: PRODUCT USED FOR UNKNOWN INDICATION
     Dosage: 0.4 MG, UNK
     Route: 060
  16. TORSEMIDE. [Concomitant]
     Active Substance: TORSEMIDE
     Indication: PRODUCT USED FOR UNKNOWN INDICATION
     Route: 065
  17. TAMSULOSIN [Concomitant]
     Active Substance: TAMSULOSIN
     Indication: PRODUCT USED FOR UNKNOWN INDICATION
     Route: 065
  18. TYLENOL [Concomitant]
     Active Substance: ACETAMINOPHEN
     Indication: PRODUCT USED FOR UNKNOWN INDICATION
     Dosage: UNK, PRN
     Route: 065
  19. RANEXA [Concomitant]
     Active Substance: RANOLAZINE
     Indication: PRODUCT USED FOR UNKNOWN INDICATION
     Route: 065
  20. POTASSIUM CHLORIDE. [Concomitant]
     Active Substance: POTASSIUM CHLORIDE
     Indication: PRODUCT USED FOR UNKNOWN INDICATION
     Route: 048
  21. METOPROLOL. [Concomitant]
     Active Substance: METOPROLOL
     Indication: PRODUCT USED FOR UNKNOWN INDICATION
     Route: 065
  22. ULORIC [Concomitant]
     Active Substance: FEBUXOSTAT
     Indication: PRODUCT USED FOR UNKNOWN INDICATION
     Route: 065
  23. APIXABAN [Concomitant]
     Active Substance: APIXABAN
     Indication: PRODUCT USED FOR UNKNOWN INDICATION
     Dosage: 2.5 MG, UNK
     Route: 048
  24. JAKAFI [Suspect]
     Active Substance: RUXOLITINIB
     Dosage: 10 MG, BID
     Route: 065
     Dates: start: 20170330
  25. IMDUR [Concomitant]
     Active Substance: ISOSORBIDE MONONITRATE
     Indication: PRODUCT USED FOR UNKNOWN INDICATION
     Route: 065
  26. JAKAFI [Suspect]
     Active Substance: RUXOLITINIB
     Dosage: 5 MG, BID
     Route: 065
     Dates: start: 20140522
  27. JAKAFI [Suspect]
     Active Substance: RUXOLITINIB
     Dosage: 15 MG QAM AND 10 MG QPM
     Route: 065
     Dates: start: 201706
  28. ASPIRIN                            /00002701/ [Concomitant]
     Active Substance: ASPIRIN
     Indication: PRODUCT USED FOR UNKNOWN INDICATION
     Route: 065
  29. ACETAMINOPHEN. [Concomitant]
     Active Substance: ACETAMINOPHEN
     Indication: PRODUCT USED FOR UNKNOWN INDICATION
     Dosage: 500 MG, Q6H
     Route: 048

REACTIONS (29)
  - Pancytopenia [Unknown]
  - Iron overload [Unknown]
  - Scab [Unknown]
  - Laryngitis viral [Unknown]
  - Splenomegaly [Unknown]
  - Sepsis [Fatal]
  - Post procedural complication [Unknown]
  - Mitral valve incompetence [Unknown]
  - Chronic kidney disease [Unknown]
  - Angina unstable [Unknown]
  - Oedema peripheral [Unknown]
  - Cardiac failure [Unknown]
  - Haemoglobin decreased [Unknown]
  - Blood count abnormal [Unknown]
  - Eosinophilia [Unknown]
  - Anaemia [Unknown]
  - Chest pain [Unknown]
  - Acute kidney injury [Fatal]
  - Dyspnoea [Unknown]
  - Cardiac failure congestive [Unknown]
  - International normalised ratio decreased [Unknown]
  - Tumour lysis syndrome [Unknown]
  - Insomnia [Unknown]
  - Nocturia [Unknown]
  - Suture related complication [Unknown]
  - Leukocytosis [Unknown]
  - Neuralgia [Unknown]
  - Fatigue [Unknown]
  - Incision site pain [Unknown]

NARRATIVE: CASE EVENT DATE: 20131115
